FAERS Safety Report 9695638 (Version 2)
Quarter: 2013Q4

REPORT INFORMATION
  Report Type: Spontaneous
  Country: BR (occurrence: BR)
  Receive Date: 20131119
  Receipt Date: 20131126
  Transmission Date: 20140711
  Serious: Yes (Other)
  Sender: FDA-Public Use
  Company Number: BR-ABBVIE-13P-020-1170731-00

PATIENT
  Age: 20 Year
  Sex: Female
  Weight: 47 kg

DRUGS (2)
  1. DEPAKOTE ER [Suspect]
     Indication: CONVULSION
     Dosage: EXTENDED RELEASE
     Route: 048
     Dates: start: 2006
  2. DEPAKOTE ER [Suspect]
     Dosage: EXTENDED RELEASE
     Route: 048

REACTIONS (5)
  - Joint dislocation [Not Recovered/Not Resolved]
  - Convulsion [Recovered/Resolved]
  - Upper limb fracture [Not Recovered/Not Resolved]
  - Expired drug administered [Unknown]
  - Convulsion [Unknown]
